FAERS Safety Report 8906083 (Version 1)
Quarter: 2012Q4

REPORT INFORMATION
  Report Type: Spontaneous
  Country: US (occurrence: None)
  Receive Date: 20121106
  Receipt Date: 20121106
  Transmission Date: 20130627
  Serious: Yes (Hospitalization, Other)
  Sender: FDA-Public Use
  Company Number: 2012-1184

PATIENT
  Age: 10 Year
  Sex: Male
  Weight: 35.8 kg

DRUGS (5)
  1. INCRELEX [Suspect]
     Indication: PITUITARY DWARFISM
     Dosage: (2 mg, 1 in 1 D)
     Route: 058
     Dates: start: 201202
  2. INCRELEX [Suspect]
     Indication: PITUITARY DWARFISM
     Dosage: (2 mg, 1 in 1 D)
     Route: 058
     Dates: start: 20101207, end: 201202
  3. NASONEX (MOMETASONE FUROATE) [Concomitant]
  4. SINGULAIR (MONTELUKAST) [Concomitant]
  5. SYNTHROID (LEVOTRYROXINE SODIUM) [Concomitant]

REACTIONS (8)
  - Snoring [None]
  - Papilloedema [None]
  - Fatigue [None]
  - Abdominal discomfort [None]
  - Nausea [None]
  - Dizziness [None]
  - Headache [None]
  - Drug dose omission [None]
